FAERS Safety Report 24642475 (Version 1)
Quarter: 2024Q4

REPORT INFORMATION
  Report Type: Spontaneous
  Country: PT (occurrence: PT)
  Receive Date: 20241120
  Receipt Date: 20241120
  Transmission Date: 20250115
  Serious: Yes (Other)
  Sender: FRESENIUS KABI
  Company Number: None

PATIENT
  Age: 63 Year
  Sex: Female

DRUGS (5)
  1. OXALIPLATIN [Suspect]
     Active Substance: OXALIPLATIN
     Indication: Rectal cancer
     Dosage: 230MG, EVERY 21 DAYS - 2 HOURS OF INFUSION?FORM OF ADMINISTRATION: CONCENTRATION FOR SOLUTION FOR IN
     Route: 042
     Dates: start: 20241024, end: 20241024
  2. OXALIPLATIN [Suspect]
     Active Substance: OXALIPLATIN
     Dosage: 230MG, EVERY 21 DAYS?FORM OF ADMINISTRATION: CONCENTRATION FOR SOLUTION FOR INFUSION.
     Route: 042
     Dates: start: 20240911, end: 20240911
  3. ONDANSETRON [Concomitant]
     Active Substance: ONDANSETRON
     Indication: Product used for unknown indication
     Dosage: FOA: ASKED BUT UNKNOWN
     Route: 042
  4. DEXAMETHASONE [Concomitant]
     Active Substance: DEXAMETHASONE
     Indication: Product used for unknown indication
     Dosage: FOA: ASKED BUT UNKNOWN.
     Route: 042
  5. CAPECITABINE [Concomitant]
     Active Substance: CAPECITABINE
     Indication: Product used for unknown indication
     Dosage: D1-D14 TO BE STARTED AT HOME?FOA: FILM-COATED TABLET
     Route: 048

REACTIONS (4)
  - Vision blurred [Recovered/Resolved]
  - Erythema [Recovered/Resolved]
  - Eyelid oedema [Recovered/Resolved]
  - Eyelid sensory disorder [Recovered/Resolved]

NARRATIVE: CASE EVENT DATE: 20241024
